FAERS Safety Report 4393215-2 (Version None)
Quarter: 2004Q3

REPORT INFORMATION
  Report Type: 
  Country: None (occurrence: None)
  Receive Date: 20040702
  Receipt Date: 20040621
  Transmission Date: 20050211
  Serious: Yes (Other)
  Sender: FDA-Public Use
  Company Number: 2004041544

PATIENT
  Sex: 0

DRUGS (1)
  1. LITHIUM (LITHIUM) [Suspect]
     Indication: BIPOLAR I DISORDER
     Dosage: 623 MG

REACTIONS (5)
  - BLOOD CALCIUM INCREASED [None]
  - CYST [None]
  - HYPOCALCAEMIA [None]
  - PARATHYROID DISORDER [None]
  - URINE CALCIUM DECREASED [None]
